FAERS Safety Report 24023157 (Version 5)
Quarter: 2024Q3

REPORT INFORMATION
  Report Type: Report from Study
  Country: VN (occurrence: VN)
  Receive Date: 20240627
  Receipt Date: 20240710
  Transmission Date: 20241016
  Serious: No
  Sender: ROCHE
  Company Number: VN-ROCHE-3340391

PATIENT
  Age: 76 Year
  Sex: Male
  Weight: 42.0 kg

DRUGS (85)
  1. ALECTINIB [Suspect]
     Active Substance: ALECTINIB
     Indication: Lung cancer metastatic
     Route: 048
     Dates: start: 20230117
  2. CEFOTAXIME [Concomitant]
     Active Substance: CEFOTAXIME SODIUM
     Route: 042
     Dates: start: 20230217, end: 20230220
  3. CEFOTAXIME [Concomitant]
     Active Substance: CEFOTAXIME SODIUM
     Route: 042
     Dates: start: 20230418, end: 20230418
  4. CEFOTAXIME [Concomitant]
     Active Substance: CEFOTAXIME SODIUM
     Route: 042
     Dates: start: 20231002, end: 20231002
  5. CIPROFLOXACIN [Concomitant]
     Active Substance: CIPROFLOXACIN
     Route: 048
     Dates: start: 20230217, end: 20230220
  6. DEXAMETHASONE [Concomitant]
     Active Substance: DEXAMETHASONE
     Route: 042
     Dates: start: 20230217, end: 20230220
  7. DEXAMETHASONE [Concomitant]
     Active Substance: DEXAMETHASONE
     Route: 042
     Dates: start: 20230310, end: 20230322
  8. DEXAMETHASONE [Concomitant]
     Active Substance: DEXAMETHASONE
     Route: 042
     Dates: start: 20230428, end: 20230428
  9. DEXAMETHASONE [Concomitant]
     Active Substance: DEXAMETHASONE
     Route: 042
     Dates: start: 20230530, end: 20230530
  10. DEXAMETHASONE [Concomitant]
     Active Substance: DEXAMETHASONE
     Route: 042
     Dates: start: 20230629, end: 20230629
  11. DEXAMETHASONE [Concomitant]
     Active Substance: DEXAMETHASONE
     Route: 042
     Dates: start: 20230731, end: 20230731
  12. DEXAMETHASONE [Concomitant]
     Active Substance: DEXAMETHASONE
     Route: 042
     Dates: start: 20230830, end: 20230830
  13. DEXAMETHASONE [Concomitant]
     Active Substance: DEXAMETHASONE
     Route: 042
     Dates: start: 20231102, end: 20231102
  14. DEXAMETHASONE [Concomitant]
     Active Substance: DEXAMETHASONE
     Route: 042
     Dates: start: 20231116, end: 20231116
  15. DEXAMETHASONE [Concomitant]
     Active Substance: DEXAMETHASONE
     Route: 042
     Dates: start: 20231002, end: 20231002
  16. DEXAMETHASONE [Concomitant]
     Active Substance: DEXAMETHASONE
     Route: 042
     Dates: start: 20240115, end: 20240115
  17. TRANEXAMIC ACID [Concomitant]
     Active Substance: TRANEXAMIC ACID
     Route: 042
     Dates: start: 20230217, end: 20230220
  18. ATROPINE SULFATE [Concomitant]
     Active Substance: ATROPINE SULFATE
     Route: 030
     Dates: start: 20230217, end: 20230217
  19. LIPOVENOES PLR [Concomitant]
     Route: 042
     Dates: start: 20230218, end: 20230220
  20. NATRI CLORID [Concomitant]
     Route: 042
     Dates: start: 20230218, end: 20230220
  21. NATRI CLORID [Concomitant]
     Route: 042
     Dates: start: 20230310, end: 20230322
  22. NATRI CLORID [Concomitant]
     Dosage: NATRI CLORID 10% 500MG/5ML
     Route: 042
     Dates: start: 20230418, end: 20230418
  23. NATRI CLORID [Concomitant]
     Dosage: FOR INFUSION OF 10% SODIUM CHLORIDE SOLUTION
     Route: 042
     Dates: start: 20230418, end: 20230418
  24. NATRI CLORID [Concomitant]
     Dosage: FOR INFUSION OF 10% SODIUM CHLORIDE SOLUTION
     Route: 042
     Dates: start: 20230428, end: 20230428
  25. NATRI CLORID [Concomitant]
     Route: 042
     Dates: start: 20230418, end: 20230427
  26. NATRI CLORID [Concomitant]
     Route: 042
     Dates: start: 20230427, end: 20230427
  27. NATRI CLORID [Concomitant]
     Route: 042
     Dates: start: 20230419, end: 20230419
  28. NATRI CLORID [Concomitant]
     Route: 042
     Dates: start: 20230419, end: 20230419
  29. NATRI CLORID [Concomitant]
     Route: 042
     Dates: start: 20230419, end: 20230419
  30. NATRI CLORID [Concomitant]
     Route: 042
     Dates: start: 20230420, end: 20230427
  31. NATRI CLORID [Concomitant]
     Route: 042
     Dates: start: 20230420, end: 20230420
  32. NATRI CLORID [Concomitant]
     Dosage: INFUSION ZOLEDRONIC ACID
     Route: 042
     Dates: start: 20230428, end: 20230428
  33. FOGYMA [Concomitant]
     Route: 048
     Dates: start: 20230215, end: 20230220
  34. FOGYMA [Concomitant]
     Route: 042
     Dates: start: 20230310, end: 20230322
  35. FOGYMA [Concomitant]
     Route: 048
     Dates: start: 20230629, end: 20230629
  36. FOGYMA [Concomitant]
     Route: 042
     Dates: start: 20230530, end: 20230530
  37. FOGYMA [Concomitant]
     Route: 042
     Dates: start: 20230731, end: 20230731
  38. POLTRAPA [Concomitant]
     Route: 048
     Dates: start: 20230218, end: 20230220
  39. LACTULOSE [Concomitant]
     Active Substance: LACTULOSE
     Route: 048
     Dates: start: 20230218, end: 20230220
  40. LACTULOSE [Concomitant]
     Active Substance: LACTULOSE
     Route: 048
     Dates: start: 20230310, end: 20230312
  41. AXITAN [Concomitant]
     Route: 048
     Dates: start: 20230218, end: 20230220
  42. AXITAN [Concomitant]
     Route: 048
     Dates: start: 20230419, end: 20230428
  43. AXITAN [Concomitant]
     Route: 048
     Dates: start: 20230731, end: 20230731
  44. AXITAN [Concomitant]
     Route: 048
     Dates: start: 20230830, end: 20230830
  45. AXITAN [Concomitant]
     Route: 048
     Dates: start: 20231002, end: 20231002
  46. AXITAN [Concomitant]
     Route: 048
     Dates: start: 20231116, end: 20231116
  47. PIPERACILLIN SODIUM\TAZOBACTAM SODIUM [Concomitant]
     Active Substance: PIPERACILLIN SODIUM\TAZOBACTAM SODIUM
     Route: 042
     Dates: start: 20230310, end: 20230322
  48. ZOLEDRONIC ACID [Concomitant]
     Active Substance: ZOLEDRONIC ACID
     Route: 042
     Dates: start: 20230322, end: 20230322
  49. ZOLEDRONIC ACID [Concomitant]
     Active Substance: ZOLEDRONIC ACID
     Route: 042
     Dates: start: 20230328, end: 20230328
  50. ZOLEDRONIC ACID [Concomitant]
     Active Substance: ZOLEDRONIC ACID
     Route: 042
     Dates: start: 20230530, end: 20230530
  51. LEVOFLOXACIN [Concomitant]
     Active Substance: LEVOFLOXACIN
     Route: 048
     Dates: start: 20230317, end: 20230322
  52. LEVOFLOXACIN [Concomitant]
     Active Substance: LEVOFLOXACIN
     Route: 042
     Dates: start: 20230418, end: 20230427
  53. ALBUMIN HUMAN [Concomitant]
     Active Substance: ALBUMIN HUMAN
     Dosage: INJ 200G/L 50ML
     Route: 042
     Dates: start: 20230317, end: 20230322
  54. ALBUMIN HUMAN [Concomitant]
     Active Substance: ALBUMIN HUMAN
     Dosage: 10 G/50ML
     Route: 042
     Dates: start: 20230302, end: 20230302
  55. ALBUMIN HUMAN [Concomitant]
     Active Substance: ALBUMIN HUMAN
     Dosage: 10 G/50ML
     Route: 042
     Dates: start: 20230418, end: 20230422
  56. ALBUMIN HUMAN [Concomitant]
     Active Substance: ALBUMIN HUMAN
     Dosage: 200G/L 50ML
     Route: 042
     Dates: start: 20230117, end: 20230117
  57. ALBUMIN HUMAN [Concomitant]
     Active Substance: ALBUMIN HUMAN
     Dosage: 200G/L 50ML
     Route: 042
     Dates: start: 20230215, end: 20230217
  58. SOLU-MEDROL [Concomitant]
     Active Substance: METHYLPREDNISOLONE SODIUM SUCCINATE
     Route: 042
     Dates: start: 20230314, end: 20230314
  59. GABAPENTIN [Concomitant]
     Active Substance: GABAPENTIN
     Route: 048
     Dates: start: 20230310, end: 20230317
  60. CEFEPIME HYDROCHLORIDE [Concomitant]
     Active Substance: CEFEPIME HYDROCHLORIDE
     Route: 042
     Dates: start: 20230420, end: 20230426
  61. CEFEPIME HYDROCHLORIDE [Concomitant]
     Active Substance: CEFEPIME HYDROCHLORIDE
     Route: 042
     Dates: start: 20230419, end: 20230419
  62. CEFEPIME HYDROCHLORIDE [Concomitant]
     Active Substance: CEFEPIME HYDROCHLORIDE
     Route: 042
     Dates: start: 20230427, end: 20230427
  63. CERNEVIT [Concomitant]
     Active Substance: VITAMINS
     Dosage: 1 AMPULE
     Route: 042
     Dates: start: 20230418, end: 20230427
  64. CERNEVIT [Concomitant]
     Active Substance: VITAMINS
     Dosage: 1 AMPULE
     Route: 042
     Dates: start: 20230530, end: 20230530
  65. CERNEVIT [Concomitant]
     Active Substance: VITAMINS
     Dosage: 1 AMPULE
     Route: 042
     Dates: start: 20231002, end: 20231002
  66. METHYLPREDNISOLONE [Concomitant]
     Active Substance: METHYLPREDNISOLONE
     Route: 042
     Dates: start: 20230418, end: 20230427
  67. ACETAMINOPHEN [Concomitant]
     Active Substance: ACETAMINOPHEN
     Route: 042
     Dates: start: 20230418, end: 20230418
  68. GLUTATHIONE [Concomitant]
     Active Substance: GLUTATHIONE
     Route: 042
     Dates: start: 20230420, end: 20230427
  69. GLUTATHIONE [Concomitant]
     Active Substance: GLUTATHIONE
     Route: 042
     Dates: start: 20230629, end: 20230629
  70. DIPHENHYDRAMINE [Concomitant]
     Active Substance: DIPHENHYDRAMINE
     Route: 042
     Dates: start: 20230420, end: 20230420
  71. DIPHENHYDRAMINE [Concomitant]
     Active Substance: DIPHENHYDRAMINE
     Route: 042
     Dates: start: 20230629, end: 20230629
  72. DIPHENHYDRAMINE [Concomitant]
     Active Substance: DIPHENHYDRAMINE
     Route: 042
     Dates: start: 20230731, end: 20230731
  73. DIPHENHYDRAMINE [Concomitant]
     Active Substance: DIPHENHYDRAMINE
     Route: 042
     Dates: start: 20230830, end: 20230830
  74. DIPHENHYDRAMINE [Concomitant]
     Active Substance: DIPHENHYDRAMINE
     Route: 042
     Dates: start: 20231116, end: 20231116
  75. DIPHENHYDRAMINE [Concomitant]
     Active Substance: DIPHENHYDRAMINE
     Route: 042
     Dates: start: 20231002, end: 20231002
  76. DIPHENHYDRAMINE [Concomitant]
     Active Substance: DIPHENHYDRAMINE
     Dosage: FREQUENCY TEXT:PRN
     Route: 042
     Dates: start: 20230428, end: 20230428
  77. DIPHENHYDRAMINE [Concomitant]
     Active Substance: DIPHENHYDRAMINE
     Route: 042
     Dates: start: 20231214, end: 20231214
  78. DIPHENHYDRAMINE [Concomitant]
     Active Substance: DIPHENHYDRAMINE
     Route: 042
     Dates: start: 20240115, end: 20240115
  79. ESTOR [Concomitant]
     Route: 048
     Dates: start: 20230529, end: 20230529
  80. ESTOR [Concomitant]
     Route: 048
     Dates: start: 20230629, end: 20230629
  81. ZOLED [Concomitant]
     Route: 042
     Dates: start: 20231214, end: 20231214
  82. ZOLED [Concomitant]
     Route: 042
     Dates: start: 20240115, end: 20240115
  83. DEXAMETHASON KABI [Concomitant]
     Route: 042
     Dates: start: 20231214, end: 20231214
  84. DEXAMETHASON KABI [Concomitant]
     Route: 042
     Dates: start: 20231214, end: 20231214
  85. GLUTATHIONE [Concomitant]
     Active Substance: GLUTATHIONE
     Route: 042
     Dates: start: 20240115, end: 20240115

REACTIONS (2)
  - Anaemia [Recovered/Resolved]
  - Hyponatraemia [Recovered/Resolved]

NARRATIVE: CASE EVENT DATE: 20230117
